FAERS Safety Report 4391728-0 (Version None)
Quarter: 2004Q3

REPORT INFORMATION
  Report Type: 
  Country: None (occurrence: None)
  Receive Date: 20040701
  Receipt Date: 20040618
  Transmission Date: 20050211
  Serious: Yes (Disabling, Other)
  Sender: FDA-Public Use
  Company Number: 2004041375

PATIENT
  Age: 48 Year
  Sex: Male
  Weight: 96.6162 kg

DRUGS (4)
  1. VIAGRA [Suspect]
     Indication: ERECTILE DYSFUNCTION
     Dosage: 100 MG (AS NEEDED), ORAL
     Route: 048
  2. OXYCOCET (OXYCODONE HYDROCHLORIDE, PARACETAMOL) [Concomitant]
  3. DIAZEPAM [Concomitant]
  4. GLIMEPIRIDE [Concomitant]

REACTIONS (9)
  - APATHY [None]
  - BODY HEIGHT DECREASED [None]
  - DRUG EFFECT INCREASED [None]
  - EJACULATION FAILURE [None]
  - ERECTILE DYSFUNCTION [None]
  - NERVE INJURY [None]
  - POST PROCEDURAL COMPLICATION [None]
  - SPINAL CORD PARALYSIS [None]
  - SURGICAL PROCEDURE REPEATED [None]
